FAERS Safety Report 9749249 (Version 1)
Quarter: 2013Q4

REPORT INFORMATION
  Report Type: Spontaneous
  Country: US (occurrence: US)
  Receive Date: 20131212
  Receipt Date: 20131212
  Transmission Date: 20140711
  Serious: No
  Sender: FDA-Public Use
  Company Number: US-INCYTE CORPORATION-2013IN002725

PATIENT
  Age: 68 Year
  Sex: Male

DRUGS (12)
  1. JAKAFI [Suspect]
     Indication: MYELOFIBROSIS
     Dosage: 10 AM / 5 PM, BID
     Route: 048
     Dates: start: 20120712
  2. ZOLPIDEM [Concomitant]
  3. POTASSIUM [Concomitant]
  4. GABAPENTIN [Concomitant]
  5. HYDRALAZINE [Concomitant]
  6. FENOFIBRATE [Concomitant]
  7. METOLAZONE [Concomitant]
  8. TORSEMIDE [Concomitant]
  9. SIMVASTATIN [Concomitant]
  10. SOTALOL [Concomitant]
  11. DOXAZOSIN [Concomitant]
  12. IMDUR [Concomitant]

REACTIONS (1)
  - Diarrhoea [Not Recovered/Not Resolved]
